FAERS Safety Report 8743302 (Version 2)
Quarter: 2012Q4

REPORT INFORMATION
  Report Type: 
  Country: US (occurrence: US)
  Receive Date: 20120824
  Receipt Date: 20120924
  Transmission Date: 20130627
  Serious: Yes (Hospitalization, Other)
  Sender: FDA-Public Use
  Company Number: US-CELGENEUS-163-21880-12070207

PATIENT
  Age: 80 Year
  Sex: Male

DRUGS (5)
  1. REVLIMID [Suspect]
     Indication: MULTIPLE MYELOMA
     Dosage: 10 Milligram
     Route: 048
     Dates: start: 20100518
  2. CLARITHROMYCIN [Concomitant]
     Indication: MULTIPLE MYELOMA PROGRESSION
     Dosage: 1000 Milligram
     Route: 065
  3. DEXAMETHASONE [Concomitant]
     Indication: MULTIPLE MYELOMA PROGRESSION
     Dosage: 4 Milligram
     Route: 065
  4. ASA [Concomitant]
     Indication: DRUG USE FOR UNKNOWN INDICATION
     Dosage: 162 Milligram
     Route: 048
  5. FLOMAX [Concomitant]
     Indication: DRUG USE FOR UNKNOWN INDICATION
     Dosage: .4 Milligram
     Route: 048

REACTIONS (5)
  - Urinary retention [Recovering/Resolving]
  - Drug dose omission [Recovered/Resolved]
  - Gastroenteritis viral [Recovered/Resolved]
  - Hyperglycaemia [Recovered/Resolved]
  - Plasma cell myeloma [Unknown]
